FAERS Safety Report 8555541-2 (Version None)
Quarter: 2012Q3

REPORT INFORMATION
  Report Type: 
  Country: None (occurrence: None)
  Receive Date: 20120731
  Receipt Date: 20110920
  Transmission Date: 20120928
  Serious: No
  Sender: FDA-Public Use
  Company Number: US-ASTRAZENECA-2010SE55003

PATIENT
  Age: 47 Year
  Sex: Female
  Weight: 108.9 kg

DRUGS (10)
  1. SEROQUEL [Suspect]
     Indication: INSOMNIA
     Route: 048
  2. SEROQUEL [Suspect]
     Dosage: AS NEEDED
     Route: 048
  3. SEROQUEL [Suspect]
     Indication: ANXIETY
     Route: 048
  4. SEROQUEL [Suspect]
     Dosage: AS NEEDED
     Route: 048
  5. SEROQUEL [Suspect]
     Indication: BIPOLAR DISORDER
     Route: 048
  6. SEROQUEL [Suspect]
     Dosage: AS NEEDED
     Route: 048
  7. SEROQUEL [Suspect]
     Indication: SLEEP DISORDER
     Route: 048
  8. SEROQUEL [Suspect]
     Dosage: AS NEEDED
     Route: 048
  9. SEROQUEL [Suspect]
     Indication: POST-TRAUMATIC STRESS DISORDER
     Route: 048
  10. SEROQUEL [Suspect]
     Dosage: AS NEEDED
     Route: 048

REACTIONS (11)
  - BACK PAIN [None]
  - BEDRIDDEN [None]
  - INTENTIONAL DRUG MISUSE [None]
  - ASTHENIA [None]
  - HYPOGLYCAEMIA [None]
  - MALAISE [None]
  - INCREASED APPETITE [None]
  - FATIGUE [None]
  - DRUG DOSE OMISSION [None]
  - HANGOVER [None]
  - WEIGHT INCREASED [None]
